FAERS Safety Report 11712834 (Version 1)
Quarter: 2015Q4

REPORT INFORMATION
  Report Type: Spontaneous
  Country: US (occurrence: US)
  Receive Date: 20151104
  Receipt Date: 20151104
  Transmission Date: 20160304
  Serious: No
  Sender: FDA-Public Use
  Company Number: US-ELI_LILLY_AND_COMPANY-US201103008713

PATIENT
  Age: 55 Year
  Sex: Female

DRUGS (3)
  1. FORTEO [Suspect]
     Active Substance: TERIPARATIDE
     Dosage: 20 UG, QD
  2. FORTEO [Suspect]
     Active Substance: TERIPARATIDE
     Indication: OSTEOPOROSIS
     Dosage: 20 UG, QD
     Route: 065
     Dates: start: 20110328
  3. FORTEO [Suspect]
     Active Substance: TERIPARATIDE
     Dosage: 20 UG, QD
     Route: 065

REACTIONS (11)
  - Sinus headache [Unknown]
  - Injection site pain [Unknown]
  - Temporomandibular joint syndrome [Unknown]
  - Eye pain [Unknown]
  - Abdominal discomfort [Unknown]
  - Pain in jaw [Unknown]
  - Sinus disorder [Unknown]
  - Nausea [Unknown]
  - Abnormal sensation in eye [Unknown]
  - Dental discomfort [Unknown]
  - Headache [Unknown]

NARRATIVE: CASE EVENT DATE: 201103
